FAERS Safety Report 10363461 (Version 3)
Quarter: 2014Q3

REPORT INFORMATION
  Report Type: Spontaneous
  Country: US (occurrence: US)
  Receive Date: 20140805
  Receipt Date: 20140902
  Transmission Date: 20150326
  Serious: Yes (Death, Life-Threatening, Hospitalization, Other)
  Sender: FDA-Public Use
  Company Number: US-GLAXOSMITHKLINE-A1083886A

PATIENT
  Age: 48 Year
  Sex: Male

DRUGS (3)
  1. MEKINIST [Suspect]
     Active Substance: TRAMETINIB DIMETHYL SULFOXIDE
     Indication: METASTATIC MALIGNANT MELANOMA
     Route: 048
     Dates: start: 2014
  2. TAFINLAR [Suspect]
     Active Substance: DABRAFENIB MESYLATE
     Indication: METASTATIC MALIGNANT MELANOMA
     Route: 048
     Dates: start: 2014
  3. BETA BLOCKERS [Concomitant]
     Indication: CORONARY ARTERY DISEASE

REACTIONS (13)
  - Acute myocardial infarction [Recovering/Resolving]
  - Circulatory collapse [Unknown]
  - Death [Fatal]
  - Angina unstable [Unknown]
  - Troponin increased [Recovering/Resolving]
  - Malaise [Recovering/Resolving]
  - Metastases to heart [Unknown]
  - Fatigue [Recovering/Resolving]
  - Myocardial infarction [Recovering/Resolving]
  - Blood pressure decreased [Recovering/Resolving]
  - Asthenia [Recovering/Resolving]
  - Metastatic malignant melanoma [Unknown]
  - Ejection fraction decreased [Recovering/Resolving]

NARRATIVE: CASE EVENT DATE: 2014
